FAERS Safety Report 19826729 (Version 6)
Quarter: 2022Q4

REPORT INFORMATION
  Report Type: Report from Study
  Country: DE (occurrence: DE)
  Receive Date: 20210914
  Receipt Date: 20221031
  Transmission Date: 20230113
  Serious: Yes (Hospitalization, Other)
  Sender: FDA-Public Use
  Company Number: DE-INSMED, INC.-2021-09394-DE

PATIENT
  Age: 77 Year
  Sex: Female

DRUGS (2)
  1. ARIKAYCE [Suspect]
     Active Substance: AMIKACIN
     Indication: Mycobacterial infection
     Dosage: 590 MILLIGRAM, QOD
     Route: 055
     Dates: start: 20210903, end: 20210906
  2. ARIKAYCE [Suspect]
     Active Substance: AMIKACIN
     Dosage: 590 MILLIGRAM, TIW, ON MONDAY, WEDNESDAY AND FRIDAY
     Route: 055
     Dates: start: 20210907, end: 20221005

REACTIONS (45)
  - Renal disorder [Not Recovered/Not Resolved]
  - Dental fistula [Recovered/Resolved]
  - Hospitalisation [Unknown]
  - Pneumonia fungal [Not Recovered/Not Resolved]
  - Oedema peripheral [Not Recovered/Not Resolved]
  - Hospitalisation [Unknown]
  - Pneumonia [Recovered/Resolved]
  - Pain in extremity [Recovered/Resolved]
  - Throat clearing [Recovered/Resolved]
  - Chest pain [Recovered/Resolved]
  - Gastrointestinal disorder [Recovered/Resolved]
  - Sleep disorder [Recovering/Resolving]
  - Restlessness [Not Recovered/Not Resolved]
  - Syncope [Recovered/Resolved]
  - Skin discolouration [Not Recovered/Not Resolved]
  - Nasopharyngitis [Recovering/Resolving]
  - Paraesthesia [Not Recovered/Not Resolved]
  - Abdominal pain [Recovered/Resolved]
  - Insomnia [Recovered/Resolved]
  - Pruritus [Recovered/Resolved]
  - Decreased appetite [Recovered/Resolved]
  - Sputum increased [Not Recovered/Not Resolved]
  - Productive cough [Recovered/Resolved]
  - Dysgeusia [Recovered/Resolved]
  - Dysgeusia [Recovered/Resolved]
  - Dysgeusia [Recovering/Resolving]
  - Rash pruritic [Recovered/Resolved]
  - Pyrexia [Recovered/Resolved]
  - Pyrexia [Recovered/Resolved]
  - Retching [Unknown]
  - Dizziness [Not Recovered/Not Resolved]
  - Cough [Recovering/Resolving]
  - Adverse reaction [Not Recovered/Not Resolved]
  - Nausea [Recovered/Resolved]
  - Nausea [Not Recovered/Not Resolved]
  - Asthenia [Recovering/Resolving]
  - Diarrhoea [Recovered/Resolved]
  - Dyspnoea [Recovered/Resolved]
  - Nocturnal dyspnoea [Recovering/Resolving]
  - Off label use [Unknown]
  - Therapy interrupted [Unknown]
  - Treatment noncompliance [Unknown]
  - Product supply issue [Unknown]
  - Product packaging difficult to open [Unknown]
  - Product dose omission issue [Unknown]

NARRATIVE: CASE EVENT DATE: 20210101
